FAERS Safety Report 9797119 (Version 2)
Quarter: 2014Q1

REPORT INFORMATION
  Report Type: Spontaneous
  Country: GB (occurrence: GB)
  Receive Date: 20140106
  Receipt Date: 20140106
  Transmission Date: 20141002
  Serious: Yes (Other)
  Sender: FDA-Public Use
  Company Number: PHFR2013GB004540

PATIENT
  Age: 36 Year
  Sex: Male

DRUGS (3)
  1. CLOZARIL [Suspect]
     Indication: SCHIZOPHRENIA
     Dosage: UNK UKN, UNK
     Route: 048
     Dates: start: 20070219
  2. CLOZARIL [Suspect]
     Dosage: 250 MG, DAILY
     Route: 048
     Dates: start: 20130726, end: 20130809
  3. CLOZARIL [Suspect]
     Dosage: UNK UKN, UNK
     Route: 048

REACTIONS (3)
  - Bifascicular block [Not Recovered/Not Resolved]
  - Tachycardia [Not Recovered/Not Resolved]
  - Haemoglobin increased [Recovering/Resolving]
